FAERS Safety Report 25752620 (Version 1)
Quarter: 2025Q3

REPORT INFORMATION
  Report Type: Report from Study
  Country: EU (occurrence: EU)
  Receive Date: 20250902
  Receipt Date: 20250902
  Transmission Date: 20251021
  Serious: Yes (Congenital Anomaly)
  Sender: VERITY PHARMACEUTICALS INC.
  Company Number: EU-VER-202500012

PATIENT
  Sex: Female

DRUGS (1)
  1. TRIPTORELIN [Suspect]
     Active Substance: TRIPTORELIN
     Indication: Infertility female
     Route: 065

REACTIONS (1)
  - Neonatal deformity [Unknown]
